FAERS Safety Report 9698003 (Version 1)
Quarter: 2013Q4

REPORT INFORMATION
  Report Type: Spontaneous
  Country: TW (occurrence: None)
  Receive Date: 20131118
  Receipt Date: 20131118
  Transmission Date: 20140711
  Serious: Yes (Hospitalization)
  Sender: FDA-Public Use
  Company Number: 152097

PATIENT
  Age: 20 Year
  Sex: Female

DRUGS (1)
  1. KETAMINE HCL [Suspect]
     Indication: DRUG ABUSE
     Dosage: 2-5 G/DAY BY NASAL INSUFFLATION
     Route: 045

REACTIONS (4)
  - Renal infarct [None]
  - Drug abuse [None]
  - Cystitis [None]
  - Asthenia [None]
